FAERS Safety Report 6111267-6 (Version None)
Quarter: 2009Q1

REPORT INFORMATION
  Report Type: 
  Country: None (occurrence: None)
  Receive Date: 20090309
  Receipt Date: 20090226
  Transmission Date: 20090719
  Serious: Yes (Other)
  Sender: FDA-Public Use
  Company Number: 204006

PATIENT
  Age: 18 Year
  Sex: Female

DRUGS (3)
  1. VINCRISTINE SULFATE [Suspect]
     Indication: NON-HODGKIN'S LYMPHOMA
     Dosage: 2 MG, DAY 1, INTRAVENOUS
     Route: 042
  2. (CHEMOTHERAPEUTICS NOS) [Suspect]
     Indication: NON-HODGKIN'S LYMPHOMA
  3. PREDNISOLONE TAB [Suspect]
     Indication: NON-HODGKIN'S LYMPHOMA
     Dosage: 100 MG, DAYS 1-7, ORAL
     Route: 048

REACTIONS (23)
  - ANAEMIA [None]
  - BLISTER [None]
  - BONE MARROW FAILURE [None]
  - CARDIAC TAMPONADE [None]
  - CLOSTRIDIUM DIFFICILE COLITIS [None]
  - DISEASE PROGRESSION [None]
  - DRUG HYPERSENSITIVITY [None]
  - HYPOTENSION [None]
  - HYPOVOLAEMIA [None]
  - IMMUNOSUPPRESSION [None]
  - IMPAIRED HEALING [None]
  - LIVER DISORDER [None]
  - MALNUTRITION [None]
  - MUCOSAL INFLAMMATION [None]
  - NEUTROPENIA [None]
  - NIKOLSKY'S SIGN [None]
  - PYREXIA [None]
  - RASH ERYTHEMATOUS [None]
  - RENAL FAILURE ACUTE [None]
  - SKIN EXFOLIATION [None]
  - STAPHYLOCOCCAL SCALDED SKIN SYNDROME [None]
  - TACHYCARDIA [None]
  - THROMBOCYTOPENIA [None]
